FAERS Safety Report 20305666 (Version 2)
Quarter: 2022Q1

REPORT INFORMATION
  Report Type: Spontaneous
  Country: CH (occurrence: CH)
  Receive Date: 20220106
  Receipt Date: 20220128
  Transmission Date: 20220423
  Serious: Yes (Death)
  Sender: FDA-Public Use
  Company Number: CH-ABBVIE-22K-151-4220977-00

PATIENT
  Age: 79 Year
  Sex: Male
  Weight: 88.2 kg

DRUGS (3)
  1. VENETOCLAX [Suspect]
     Active Substance: VENETOCLAX
     Indication: Acute lymphocytic leukaemia
     Route: 048
     Dates: start: 202106, end: 20211213
  2. VENETOCLAX [Suspect]
     Active Substance: VENETOCLAX
     Indication: Acute myeloid leukaemia
     Dosage: DAY 1-14, Q28
     Route: 048
     Dates: start: 20210802, end: 20211213
  3. SULFAMETHOXAZOLUM [Concomitant]
     Indication: Infection prophylaxis
     Dosage: 800/160 MG
     Route: 048
     Dates: start: 20191118, end: 20211213

REACTIONS (5)
  - Acute lymphocytic leukaemia [Fatal]
  - Acute myeloid leukaemia [Fatal]
  - General physical health deterioration [Fatal]
  - Off label use [Unknown]
  - Therapeutic response unexpected [Unknown]

NARRATIVE: CASE EVENT DATE: 20211209
